FAERS Safety Report 12426831 (Version 4)
Quarter: 2017Q1

REPORT INFORMATION
  Report Type: Spontaneous
  Country: US (occurrence: US)
  Receive Date: 20160601
  Receipt Date: 20170331
  Transmission Date: 20170428
  Serious: Yes (Hospitalization)
  Sender: FDA-Public Use
  Company Number: US-ACTELION-A-US2016-136853

PATIENT
  Age: 68 Year
  Sex: Female

DRUGS (3)
  1. VELETRI [Suspect]
     Active Substance: EPOPROSTENOL
     Indication: PULMONARY ARTERIAL HYPERTENSION
     Dosage: 44 NG/KG, PER MIN
     Route: 042
     Dates: start: 20130531
  2. SILDENAFIL. [Concomitant]
     Active Substance: SILDENAFIL
  3. PRADAXA [Concomitant]
     Active Substance: DABIGATRAN ETEXILATE MESYLATE

REACTIONS (11)
  - Fluid retention [Unknown]
  - Malaise [Unknown]
  - Vomiting [Unknown]
  - Haemorrhage [Unknown]
  - Nausea [Unknown]
  - Thrombosis in device [Unknown]
  - Device alarm issue [Unknown]
  - Asthenia [Unknown]
  - Tremor [Unknown]
  - Device leakage [Unknown]
  - Catheter removal [Unknown]

NARRATIVE: CASE EVENT DATE: 201605
